FAERS Safety Report 5781040-7 (Version None)
Quarter: 2008Q2

REPORT INFORMATION
  Report Type: 
  Country: None (occurrence: None)
  Receive Date: 20080620
  Receipt Date: 20080610
  Transmission Date: 20081010
  Serious: Yes (Other)
  Sender: FDA-Public Use
  Company Number: US-PFIZER INC-2008049375

PATIENT
  Sex: Female

DRUGS (1)
  1. CHANTIX [Suspect]

REACTIONS (6)
  - ABNORMAL DREAMS [None]
  - AMNESIA [None]
  - CONTUSION [None]
  - DEPRESSION [None]
  - DRUG INEFFECTIVE [None]
  - FALL [None]
